FAERS Safety Report 4864345-3 (Version None)
Quarter: 2005Q4

REPORT INFORMATION
  Report Type: 
  Country: None (occurrence: None)
  Receive Date: 20051222
  Receipt Date: 20051005
  Transmission Date: 20060501
  Serious: Yes (Hospitalization)
  Sender: FDA-Public Use
  Company Number: US-MERCK-0510USA05382

PATIENT
  Age: 71 Year
  Sex: Female
  Weight: 89 kg

DRUGS (12)
  1. VIOXX [Suspect]
     Indication: ARTHRITIS
     Route: 048
     Dates: start: 20021213
  2. VIOXX [Suspect]
     Route: 048
     Dates: end: 20030816
  3. LASIX [Concomitant]
     Route: 065
  4. ALDACTONE [Concomitant]
     Route: 065
  5. ISORDIL [Concomitant]
     Route: 065
  6. POTASSIUM (UNSPECIFIED) [Concomitant]
     Route: 065
  7. DIOVAN [Concomitant]
     Route: 065
  8. ATENOLOL [Concomitant]
     Route: 065
  9. ASPIRIN [Concomitant]
     Route: 065
  10. [THERAPY UNSPECIFIED] [Concomitant]
     Route: 065
  11. PRAVACHOL [Concomitant]
     Route: 065
  12. FOSAMAX [Concomitant]
     Route: 048

REACTIONS (1)
  - MYOCARDIAL INFARCTION [None]
